FAERS Safety Report 9132499 (Version 1)
Quarter: 2013Q1

REPORT INFORMATION
  Report Type: Spontaneous
  Country: FR (occurrence: FR)
  Receive Date: 20130301
  Receipt Date: 20130301
  Transmission Date: 20140127
  Serious: Yes (Hospitalization)
  Sender: FDA-Public Use
  Company Number: FR-VIIV HEALTHCARE LIMITED-B0869568A

PATIENT
  Age: 61 Year
  Sex: Female

DRUGS (9)
  1. COMBIVIR [Suspect]
     Indication: HIV INFECTION
     Route: 048
     Dates: start: 20121004
  2. PEGASYS [Suspect]
     Indication: HEPATITIS C
     Route: 058
     Dates: start: 20120101, end: 20121126
  3. COPEGUS [Suspect]
     Indication: HEPATITIS C
     Dosage: 200MG FOUR TIMES PER DAY
     Route: 048
     Dates: start: 20120101, end: 20121126
  4. TENORMINE [Concomitant]
     Indication: HYPERTENSION
     Dosage: 50MG PER DAY
     Route: 048
  5. ESOMEPRAZOLE [Concomitant]
     Dosage: 20MG PER DAY
     Route: 048
  6. DOLIPRANE [Concomitant]
     Indication: PAIN
     Dosage: 500MG THREE TIMES PER DAY
     Route: 048
  7. PENTACARINAT [Concomitant]
     Indication: ANTIBIOTIC PROPHYLAXIS
     Route: 065
     Dates: start: 20120903
  8. VIRAMUNE [Concomitant]
     Indication: HIV INFECTION
     Route: 065
     Dates: start: 20121004
  9. BACTRIM [Concomitant]

REACTIONS (4)
  - Normochromic normocytic anaemia [Not Recovered/Not Resolved]
  - Malaise [Unknown]
  - Vomiting [Unknown]
  - Condition aggravated [Not Recovered/Not Resolved]
